FAERS Safety Report 9370545 (Version 2)
Quarter: 2014Q2

REPORT INFORMATION
  Report Type: Report from Study
  Country: US (occurrence: US)
  Receive Date: 20130626
  Receipt Date: 20140626
  Transmission Date: 20141212
  Serious: Yes (Other)
  Sender: FDA-Public Use
  Company Number: US-CELGENEUS-163-21880-13062760

PATIENT
  Age: 84 Year
  Sex: Male
  Weight: 110.32 kg

DRUGS (1)
  1. REVLIMID [Suspect]
     Indication: PLASMA CELL MYELOMA
     Dosage: 25 MILLIGRAM
     Route: 048
     Dates: start: 20100412, end: 20110208

REACTIONS (2)
  - Malignant melanoma in situ [Not Recovered/Not Resolved]
  - Atrial fibrillation [Unknown]
